FAERS Safety Report 15900211 (Version 4)
Quarter: 2019Q1

REPORT INFORMATION
  Report Type: Report from Study
  Country: JP (occurrence: JP)
  Receive Date: 20190201
  Receipt Date: 20190321
  Transmission Date: 20190417
  Serious: Yes (Hospitalization)
  Sender: FDA-Public Use
  Company Number: JP-EISAI MEDICAL RESEARCH-EC-2019-051364

PATIENT
  Age: 68 Year
  Sex: Female
  Weight: 42.8 kg

DRUGS (14)
  1. EXCELASE [Concomitant]
     Active Substance: PANCRELIPASE
     Dates: start: 20180627
  2. MK-3475 [Suspect]
     Active Substance: PEMBROLIZUMAB
     Indication: ENDOMETRIAL CANCER
     Route: 041
     Dates: start: 20181227, end: 20181227
  3. ESCITALOPRAM OXALATE. [Concomitant]
     Active Substance: ESCITALOPRAM OXALATE
     Dates: start: 20180627
  4. POLAPREZINC [Concomitant]
     Active Substance: POLAPREZINC
     Dates: start: 20180627
  5. AMLODIPINE [Concomitant]
     Active Substance: AMLODIPINE BESYLATE
     Dates: start: 20190116
  6. ALPRAZOLAM. [Concomitant]
     Active Substance: ALPRAZOLAM
     Dates: start: 20180627
  7. MK-3475 [Suspect]
     Active Substance: PEMBROLIZUMAB
     Route: 041
     Dates: start: 20190117, end: 20190117
  8. ACETAMINOPHEN. [Concomitant]
     Active Substance: ACETAMINOPHEN
     Dates: start: 20181115
  9. BROTIZOLAM [Concomitant]
     Active Substance: BROTIZOLAM
     Dates: start: 20180627
  10. MAGNESIUM OXIDE. [Concomitant]
     Active Substance: MAGNESIUM OXIDE
     Dates: start: 20180627
  11. DAIMEDIN 3B [Concomitant]
     Dates: start: 20180627
  12. FAMOTIDINE. [Concomitant]
     Active Substance: FAMOTIDINE
     Dates: start: 20180627
  13. LENVATINIB [Suspect]
     Active Substance: LENVATINIB
     Indication: ENDOMETRIAL CANCER
     Route: 048
     Dates: start: 20181227, end: 20190124
  14. TOWA GP GRANULES [Concomitant]
     Dates: start: 20180627

REACTIONS (1)
  - Gastrointestinal perforation [Recovered/Resolved]

NARRATIVE: CASE EVENT DATE: 20190123
